FAERS Safety Report 8228238-6 (Version None)
Quarter: 2012Q1

REPORT INFORMATION
  Report Type: 
  Country: None (occurrence: None)
  Receive Date: 20120322
  Receipt Date: 20120124
  Transmission Date: 20120608
  Serious: Yes (Hospitalization)
  Sender: FDA-Public Use
  Company Number: US-BRISTOL-MYERS SQUIBB COMPANY-16225146

PATIENT
  Age: 77 Year
  Sex: Male

DRUGS (5)
  1. PERCOCET [Concomitant]
  2. DEXAMETHASONE [Concomitant]
  3. MORPHINE SULFATE [Concomitant]
  4. ZOFRAN [Concomitant]
  5. ERBITUX [Suspect]
     Indication: HEAD AND NECK CANCER

REACTIONS (1)
  - ANAPHYLACTIC REACTION [None]
